FAERS Safety Report 13078846 (Version 2)
Quarter: 2017Q1

REPORT INFORMATION
  Report Type: Spontaneous
  Country: FR (occurrence: FR)
  Receive Date: 20170102
  Receipt Date: 20170110
  Transmission Date: 20170428
  Serious: Yes (Life-Threatening)
  Sender: FDA-Public Use
  Company Number: FR-ALSI-201600377

PATIENT
  Sex: Female

DRUGS (1)
  1. OXYGEN. [Suspect]
     Active Substance: OXYGEN
     Route: 050

REACTIONS (4)
  - Underdose [None]
  - Cardiac arrest [None]
  - Oxygen saturation decreased [None]
  - Product quality issue [None]
